FAERS Safety Report 9334694 (Version 1)
Quarter: 2013Q2

REPORT INFORMATION
  Report Type: Spontaneous
  Country: US (occurrence: US)
  Receive Date: 20130606
  Receipt Date: 20130606
  Transmission Date: 20140414
  Serious: Yes (Hospitalization)
  Sender: FDA-Public Use
  Company Number: US-AMGEN-USASP2013033950

PATIENT
  Age: 92 Year
  Sex: Female
  Weight: 51.07 kg

DRUGS (1)
  1. PROLIA [Suspect]
     Indication: OSTEOPOROSIS POSTMENOPAUSAL
     Dosage: 60 MG, Q6MO
     Route: 030
     Dates: start: 20130412

REACTIONS (2)
  - Hypocalcaemia [Recovering/Resolving]
  - Incorrect route of drug administration [Unknown]
